FAERS Safety Report 19879070 (Version 1)
Quarter: 2021Q3

REPORT INFORMATION
  Report Type: Spontaneous
  Country: FR (occurrence: FR)
  Receive Date: 20210924
  Receipt Date: 20210924
  Transmission Date: 20211014
  Serious: Yes (Other)
  Sender: FDA-Public Use
  Company Number: FR-ABBVIE-21K-056-4087948-00

PATIENT
  Age: 29 Year
  Sex: Female
  Weight: 60.5 kg

DRUGS (5)
  1. POLYSORBATE 80. [Concomitant]
     Active Substance: POLYSORBATE 80
     Indication: PRODUCT USED FOR UNKNOWN INDICATION
  2. WATER FOR INJECTION [Concomitant]
     Active Substance: WATER
     Indication: PRODUCT USED FOR UNKNOWN INDICATION
  3. MANNITOL. [Concomitant]
     Active Substance: MANNITOL
     Indication: PRODUCT USED FOR UNKNOWN INDICATION
  4. CITRIC ACID MONOHYDRATE [Concomitant]
     Active Substance: CITRIC ACID MONOHYDRATE
     Indication: PRODUCT USED FOR UNKNOWN INDICATION
  5. HUMIRA [Suspect]
     Active Substance: ADALIMUMAB
     Indication: UVEITIS
     Dosage: 40 MG TOUS LES 2 SEMAINES
     Route: 058
     Dates: start: 20210315

REACTIONS (1)
  - Adjustment disorder with depressed mood [Recovered/Resolved]

NARRATIVE: CASE EVENT DATE: 20210315
